FAERS Safety Report 4756016-9 (Version None)
Quarter: 2005Q3

REPORT INFORMATION
  Report Type: 
  Country: None (occurrence: None)
  Receive Date: 20050830
  Receipt Date: 20050805
  Transmission Date: 20060218
  Serious: Yes (Hospitalization)
  Sender: FDA-Public Use
  Company Number: US-JNJFOC-20050502238

PATIENT
  Sex: Female
  Weight: 60.78 kg

DRUGS (7)
  1. ORTHO EVRA [Suspect]
     Indication: ASTHMA
     Route: 062
  2. SINGULAIR [Concomitant]
     Dosage: DAILY AT BEDTIME
  3. ADVAIR DISKUS 100/50 [Concomitant]
  4. ADVAIR DISKUS 100/50 [Concomitant]
     Dosage: 500/50
  5. XOPENEX [Concomitant]
  6. MAXAIR [Concomitant]
  7. PREDNISONE [Concomitant]
     Route: 048

REACTIONS (4)
  - OFF LABEL USE [None]
  - PLEURISY [None]
  - PNEUMONIA [None]
  - PULMONARY EMBOLISM [None]
